FAERS Safety Report 24069667 (Version 3)
Quarter: 2024Q3

REPORT INFORMATION
  Report Type: Report from Study
  Country: US (occurrence: US)
  Receive Date: 20240710
  Receipt Date: 20240911
  Transmission Date: 20241017
  Serious: Yes (Other)
  Sender: ROCHE
  Company Number: US-ROCHE-3544931

PATIENT
  Age: 73 Year
  Sex: Female

DRUGS (5)
  1. ALECENSA [Suspect]
     Active Substance: ALECTINIB HYDROCHLORIDE
     Indication: Salivary gland cancer
     Route: 048
  2. ALECENSA [Suspect]
     Active Substance: ALECTINIB HYDROCHLORIDE
     Indication: Adenocarcinoma of salivary gland
  3. ALECENSA [Suspect]
     Active Substance: ALECTINIB HYDROCHLORIDE
     Indication: Lymphoma
  4. ATORVASTATIN AB [Concomitant]
  5. BUPROPION CINFA [Concomitant]

REACTIONS (9)
  - Off label use [Unknown]
  - Atrial flutter [Unknown]
  - Essential hypertension [Unknown]
  - Atrioventricular block complete [Unknown]
  - Diabetes mellitus [Unknown]
  - Hypothyroidism [Unknown]
  - Acute kidney injury [Unknown]
  - Iron deficiency anaemia [Unknown]
  - Renal tubular necrosis [Unknown]
